FAERS Safety Report 24329394 (Version 3)
Quarter: 2024Q4

REPORT INFORMATION
  Report Type: Spontaneous
  Country: ID (occurrence: ID)
  Receive Date: 20240917
  Receipt Date: 20241010
  Transmission Date: 20250115
  Serious: Yes (Life-Threatening, Hospitalization)
  Sender: PFIZER
  Company Number: ID-MLMSERVICE-20240909-PI184647-00145-1

PATIENT
  Age: 27 Year
  Sex: Female

DRUGS (31)
  1. DEXMEDETOMIDINE HYDROCHLORIDE [Suspect]
     Active Substance: DEXMEDETOMIDINE HYDROCHLORIDE
     Indication: Neuralgia
     Dosage: UP TO 0.8 MICROGRAMS/KILOGRAM BODY WEIGHT/HOUR-HIGH DOSES
  2. DEXMEDETOMIDINE HYDROCHLORIDE [Suspect]
     Active Substance: DEXMEDETOMIDINE HYDROCHLORIDE
     Indication: Sedative therapy
  3. DEXMEDETOMIDINE HYDROCHLORIDE [Suspect]
     Active Substance: DEXMEDETOMIDINE HYDROCHLORIDE
     Indication: Back pain
  4. PREGABALIN [Suspect]
     Active Substance: PREGABALIN
     Indication: Neuralgia
     Dosage: 75 MG, 2X/DAY, HIGH DOSES
  5. PREGABALIN [Suspect]
     Active Substance: PREGABALIN
     Indication: Back pain
  6. PREGABALIN [Suspect]
     Active Substance: PREGABALIN
     Indication: Sedative therapy
  7. KETAMINE [Suspect]
     Active Substance: KETAMINE
     Indication: Sedative therapy
     Dosage: INTERMITTENT-HIGH DOSES
  8. KETAMINE [Suspect]
     Active Substance: KETAMINE
     Indication: Neuralgia
  9. KETAMINE [Suspect]
     Active Substance: KETAMINE
     Indication: Back pain
  10. FENTANYL [Suspect]
     Active Substance: FENTANYL
     Indication: Neuralgia
     Dosage: INTERMITTENT-HIGH DOSES
  11. FENTANYL [Suspect]
     Active Substance: FENTANYL
     Indication: Sedative therapy
  12. FENTANYL [Suspect]
     Active Substance: FENTANYL
     Indication: Back pain
  13. PROPOFOL [Suspect]
     Active Substance: PROPOFOL
     Indication: Sedative therapy
     Dosage: UP TO 100 MG/HOUR-HIGH DOSES
  14. PROPOFOL [Suspect]
     Active Substance: PROPOFOL
     Indication: Back pain
  15. PROPOFOL [Suspect]
     Active Substance: PROPOFOL
     Indication: Neuralgia
  16. TRAMADOL [Suspect]
     Active Substance: TRAMADOL
     Indication: Back pain
     Dosage: 100 MG, 3X/DAY, HIGH DOSES
  17. TRAMADOL [Suspect]
     Active Substance: TRAMADOL
     Indication: Sedative therapy
  18. TRAMADOL [Suspect]
     Active Substance: TRAMADOL
     Indication: Neuralgia
  19. MORPHINE [Suspect]
     Active Substance: MORPHINE
     Indication: Neuralgia
     Dosage: INTERMITTENT-HIGH DOSES
     Route: 042
  20. MORPHINE [Suspect]
     Active Substance: MORPHINE
     Indication: Sedative therapy
     Dosage: HIGH DOSES-15 MG OVER 24 HOURS
  21. MORPHINE [Suspect]
     Active Substance: MORPHINE
     Indication: Back pain
  22. MORPHINE [Suspect]
     Active Substance: MORPHINE
     Indication: Breakthrough pain
  23. CELECOXIB [Concomitant]
     Active Substance: CELECOXIB
     Indication: Neuralgia
     Dosage: 100 MG, 2X/DAY, HIGH DOSES
  24. CELECOXIB [Concomitant]
     Active Substance: CELECOXIB
     Indication: Sedative therapy
  25. CELECOXIB [Concomitant]
     Active Substance: CELECOXIB
     Indication: Back pain
  26. METHYLPREDNISOLONE [Concomitant]
     Active Substance: METHYLPREDNISOLONE
     Indication: Meningitis bacterial
     Dosage: 500 MG, 1X/DAY
  27. DULOXETINE [Concomitant]
     Active Substance: DULOXETINE
     Indication: Back pain
     Dosage: UNK
  28. DULOXETINE [Concomitant]
     Active Substance: DULOXETINE
     Indication: Neuralgia
  29. RISPERIDONE [Concomitant]
     Active Substance: RISPERIDONE
     Indication: Back pain
     Dosage: UNK
  30. RISPERIDONE [Concomitant]
     Active Substance: RISPERIDONE
     Indication: Neuralgia
  31. MEROPENEM [Concomitant]
     Active Substance: MEROPENEM
     Indication: Meningitis bacterial
     Dosage: 2 G, 3X/DAY

REACTIONS (2)
  - Sedation complication [Unknown]
  - Altered state of consciousness [Unknown]
